FAERS Safety Report 10102433 (Version 1)
Quarter: 2014Q2

REPORT INFORMATION
  Report Type: Spontaneous
  Country: AU (occurrence: None)
  Receive Date: 20140422
  Receipt Date: 20140422
  Transmission Date: 20141212
  Serious: Yes (Other)
  Sender: FDA-Public Use
  Company Number: 2014P1003181

PATIENT
  Age: 59 Year
  Sex: Female

DRUGS (2)
  1. MITOMYCIN [Suspect]
     Indication: FIBROSIS
     Dosage: X1
     Route: 031
  2. MITOMYCIN [Suspect]
     Dosage: X1
     Route: 031

REACTIONS (7)
  - Uveitis [None]
  - Cataract [None]
  - Visual acuity reduced [None]
  - Vitreous haemorrhage [None]
  - Intraocular pressure increased [None]
  - Intraocular melanoma [None]
  - Basal cell carcinoma [None]
